FAERS Safety Report 8193720-7 (Version None)
Quarter: 2012Q1

REPORT INFORMATION
  Report Type: 
  Country: None (occurrence: None)
  Receive Date: 20120308
  Receipt Date: 20120306
  Transmission Date: 20120608
  Serious: Yes (Death, Hospitalization, Other)
  Sender: FDA-Public Use
  Company Number: US-PFIZER INC-2010122885

PATIENT
  Sex: Male

DRUGS (1)
  1. SUTENT [Suspect]
     Indication: RENAL CANCER
     Dosage: 50 MG, 1X/DAY
     Route: 048
     Dates: start: 20100826, end: 20120118

REACTIONS (5)
  - RENAL CANCER [None]
  - DEATH [None]
  - RESPIRATORY FAILURE [None]
  - DISEASE PROGRESSION [None]
  - RENAL FAILURE [None]
